FAERS Safety Report 8893209 (Version 2)
Quarter: 2012Q4

REPORT INFORMATION
  Report Type: 
  Country: US (occurrence: US)
  Receive Date: 20121108
  Receipt Date: 20121112
  Transmission Date: 20130627
  Serious: Yes (Other)
  Sender: FDA-Public Use
  Company Number: US-BAYER-2012-114317

PATIENT
  Age: 41 Year
  Sex: Female

DRUGS (1)
  1. MIRENA [Suspect]
     Indication: CONTRACEPTION
     Dosage: 20 mcg/24hr, CONT
     Route: 015

REACTIONS (6)
  - Device difficult to use [None]
  - Uterine leiomyoma [None]
  - Headache [None]
  - Depression [None]
  - Sleep disorder [None]
  - Incorrect drug administration duration [None]
